FAERS Safety Report 4476079-8 (Version None)
Quarter: 2004Q3

REPORT INFORMATION
  Report Type: 
  Country: None (occurrence: None)
  Receive Date: 20040923
  Receipt Date: 20040618
  Transmission Date: 20050211
  Serious: No
  Sender: FDA-Public Use
  Company Number: USA040670618

PATIENT
  Sex: Female
  Weight: 64 kg

DRUGS (3)
  1. FORTEO [Suspect]
     Indication: OSTEOPOROSIS
     Dates: start: 20040201
  2. NIFEDIPINE [Concomitant]
  3. OSCAL (CALCIUM CARBONATE) [Concomitant]

REACTIONS (2)
  - FATIGUE [None]
  - FIBROMYALGIA [None]
